FAERS Safety Report 4609575-0 (Version None)
Quarter: 2005Q1

REPORT INFORMATION
  Report Type: 
  Country: None (occurrence: None)
  Receive Date: 20050314
  Receipt Date: 20050224
  Transmission Date: 20050727
  Serious: Yes (Death)
  Sender: FDA-Public Use
  Company Number: AWBNIASPAND2004-49

PATIENT
  Age: 56 Year
  Sex: Female

DRUGS (1)
  1. NIASPAN [Suspect]
     Indication: DYSLIPIDAEMIA
     Dosage: 500 MG QD PO
     Route: 048
     Dates: start: 20040527, end: 20040801

REACTIONS (2)
  - NEOPLASM MALIGNANT [None]
  - SUDDEN DEATH [None]
